FAERS Safety Report 13559145 (Version 2)
Quarter: 2017Q2

REPORT INFORMATION
  Report Type: Report from Study
  Country: US (occurrence: US)
  Receive Date: 20170518
  Receipt Date: 20170526
  Transmission Date: 20170830
  Serious: Yes (Hospitalization, Other)
  Sender: FDA-Public Use
  Company Number: US-GILEAD-2017-0273087

PATIENT
  Age: 52 Year
  Sex: Female

DRUGS (1)
  1. LEDIPASVIR/SOFOSBUVIR [Suspect]
     Active Substance: LEDIPASVIR\SOFOSBUVIR
     Indication: CHRONIC HEPATITIS C
     Dosage: 1 DF, QD
     Route: 048
     Dates: start: 20170502, end: 20170509

REACTIONS (9)
  - Heart rate increased [Unknown]
  - Angina pectoris [Unknown]
  - Swelling face [Unknown]
  - Addison^s disease [Unknown]
  - Erythema [Unknown]
  - Hypertension [Unknown]
  - Hypersensitivity [Unknown]
  - Weight increased [Unknown]
  - Dysuria [Unknown]
